FAERS Safety Report 20502709 (Version 2)
Quarter: 2022Q1

REPORT INFORMATION
  Report Type: Report from Study
  Country: US (occurrence: US)
  Receive Date: 20220222
  Receipt Date: 20220314
  Transmission Date: 20220423
  Serious: Yes (Hospitalization)
  Sender: FDA-Public Use
  Company Number: US-Taiho Oncology Inc-EU-2022-00422

PATIENT
  Age: 66 Year
  Sex: Male

DRUGS (5)
  1. LONSURF [Suspect]
     Active Substance: TIPIRACIL HYDROCHLORIDE\TRIFLURIDINE
     Indication: Colorectal cancer
     Dosage: CURRENT CYCLE UNKNOWN
     Route: 048
     Dates: start: 20211204, end: 20220207
  2. LONSURF [Suspect]
     Active Substance: TIPIRACIL HYDROCHLORIDE\TRIFLURIDINE
     Indication: Colon cancer
  3. APIXABAN [Concomitant]
     Active Substance: APIXABAN
  4. LOPERAMIDE [Concomitant]
     Active Substance: LOPERAMIDE
  5. FIBER PILL [Concomitant]

REACTIONS (1)
  - Stoma site haemorrhage [Recovered/Resolved]

NARRATIVE: CASE EVENT DATE: 20220207
